FAERS Safety Report 8211432-8 (Version None)
Quarter: 2012Q1

REPORT INFORMATION
  Report Type: 
  Country: None (occurrence: None)
  Receive Date: 20120315
  Receipt Date: 20120107
  Transmission Date: 20120608
  Serious: Yes (Death, Hospitalization)
  Sender: FDA-Public Use
  Company Number: JP-UCBSA-049321

PATIENT
  Age: 88 Year
  Sex: Male
  Weight: 55 kg

DRUGS (7)
  1. KEPPRA [Suspect]
     Indication: CONVULSION PROPHYLAXIS
     Route: 048
     Dates: start: 20111206, end: 20111221
  2. FIRSTCIN [Concomitant]
     Indication: INFECTION
     Dosage: DAILY DOSE:2G
     Route: 041
     Dates: start: 20111212, end: 20111218
  3. PHENOBARBITAL TAB [Concomitant]
     Indication: CONVULSION PROPHYLAXIS
     Dosage: DAILY DOSE:200MG
     Route: 030
     Dates: start: 20111206, end: 20111208
  4. TEGRETOL [Suspect]
     Indication: CONVULSION PROPHYLAXIS
     Route: 048
     Dates: end: 20120105
  5. PHENOBARBITAL TAB [Concomitant]
     Dosage: DAILY DOSE:100MG
     Route: 030
     Dates: start: 20111209, end: 20111210
  6. ADICUT [Concomitant]
     Indication: CEREBRAL INFARCTION
     Dosage: DAILY DOSE:60MG
     Route: 041
     Dates: start: 20111208, end: 20111214
  7. UNASYN [Concomitant]
     Indication: INFECTION
     Dosage: DAILY DOSE: 3G
     Route: 041
     Dates: start: 20111209, end: 20111212

REACTIONS (2)
  - CEREBRAL INFARCTION [None]
  - HEPATIC FUNCTION ABNORMAL [None]
